FAERS Safety Report 24106991 (Version 1)
Quarter: 2024Q3

REPORT INFORMATION
  Report Type: Spontaneous
  Country: US (occurrence: US)
  Receive Date: 20240717
  Receipt Date: 20240717
  Transmission Date: 20241017
  Serious: No
  Sender: AMGEN
  Company Number: US-AMGEN-USASP2024139008

PATIENT

DRUGS (8)
  1. TEPROTUMUMAB [Suspect]
     Active Substance: TEPROTUMUMAB
     Indication: Endocrine ophthalmopathy
     Dosage: 10 MILLIGRAM/KILOGRAM, Q3WK, INITIAL DOSE (FIRST INFUSION)
     Route: 042
  2. TEPROTUMUMAB [Suspect]
     Active Substance: TEPROTUMUMAB
     Dosage: 20 MILLIGRAM/KILOGRAM, Q3WK,  SECOND INFUSION
     Route: 042
  3. TEPROTUMUMAB [Suspect]
     Active Substance: TEPROTUMUMAB
     Dosage: 20 MILLIGRAM/KILOGRAM, Q3WK,  THIRD INFUSION
     Route: 042
  4. TEPROTUMUMAB [Suspect]
     Active Substance: TEPROTUMUMAB
     Dosage: 20 MILLIGRAM/KILOGRAM, Q3WK,  FOURTH INFUSION
     Route: 042
  5. TEPROTUMUMAB [Suspect]
     Active Substance: TEPROTUMUMAB
     Dosage: 20 MILLIGRAM/KILOGRAM, Q3WK,  FIFTH INFUSION
     Route: 042
  6. TEPROTUMUMAB [Suspect]
     Active Substance: TEPROTUMUMAB
     Dosage: 20 MILLIGRAM/KILOGRAM, Q3WK,  SIXTH INFUSION
     Route: 042
  7. TEPROTUMUMAB [Suspect]
     Active Substance: TEPROTUMUMAB
     Dosage: 20 MILLIGRAM/KILOGRAM, Q3WK,  SEVENTH INFUSION
     Route: 042
  8. TEPROTUMUMAB [Suspect]
     Active Substance: TEPROTUMUMAB
     Dosage: 20 MILLIGRAM/KILOGRAM, Q3WK,  EIGHTH INFUSION
     Route: 042

REACTIONS (2)
  - Diplopia [Unknown]
  - Strabismus [Unknown]
